FAERS Safety Report 16732867 (Version 2)
Quarter: 2019Q3

REPORT INFORMATION
  Report Type: Spontaneous
  Country: US (occurrence: US)
  Receive Date: 20190823
  Receipt Date: 20190828
  Transmission Date: 20191005
  Serious: No
  Sender: FDA-Public Use
  Company Number: US-UNITED THERAPEUTICS-UNT-2019-013186

PATIENT
  Age: 53 Year
  Sex: Female
  Weight: 114.29 kg

DRUGS (4)
  1. ADEMPAS [Suspect]
     Active Substance: RIOCIGUAT
     Dosage: 1 MG, TID
     Route: 065
     Dates: end: 201908
  2. REMODULIN [Suspect]
     Active Substance: TREPROSTINIL
     Indication: PULMONARY ARTERIAL HYPERTENSION
     Dosage: 0.040 ?G/KG, CONTINUING
     Route: 058
     Dates: start: 20180516
  3. ADEMPAS [Suspect]
     Active Substance: RIOCIGUAT
     Indication: PRODUCT USED FOR UNKNOWN INDICATION
     Dosage: 1.5 MG, TID
     Route: 065
  4. LETAIRIS [Concomitant]
     Active Substance: AMBRISENTAN
     Indication: PRODUCT USED FOR UNKNOWN INDICATION
     Dosage: UNK
     Route: 065

REACTIONS (15)
  - Headache [Unknown]
  - Oxygen saturation decreased [Unknown]
  - Swelling [Unknown]
  - Malaise [Unknown]
  - Blood pressure decreased [Unknown]
  - Chest pain [Unknown]
  - Weight increased [Unknown]
  - Nausea [Unknown]
  - Abdominal distension [Unknown]
  - Heart rate decreased [Unknown]
  - Limb discomfort [Unknown]
  - Peripheral swelling [Unknown]
  - Feeling jittery [Unknown]
  - Dizziness [Unknown]
  - Diarrhoea [Unknown]

NARRATIVE: CASE EVENT DATE: 201908
